FAERS Safety Report 4907913-2 (Version None)
Quarter: 2006Q1

REPORT INFORMATION
  Report Type: 
  Country: None (occurrence: None)
  Receive Date: 20060210
  Receipt Date: 20050909
  Transmission Date: 20060701
  Serious: No
  Sender: FDA-Public Use
  Company Number: US-BRISTOL-MYERS SQUIBB COMPANY-13105648

PATIENT
  Age: 30 Year
  Sex: Female

DRUGS (2)
  1. ULTRAVATE [Suspect]
     Indication: RASH
     Route: 061
  2. PROTOPIC [Concomitant]
     Indication: RASH
     Route: 061

REACTIONS (1)
  - RASH [None]
